FAERS Safety Report 25225720 (Version 1)
Quarter: 2025Q2

REPORT INFORMATION
  Report Type: Spontaneous
  Country: US (occurrence: US)
  Receive Date: 20250422
  Receipt Date: 20250422
  Transmission Date: 20250716
  Serious: No
  Sender: SANOFI AVENTIS
  Company Number: US-SA-2025SA111328

PATIENT
  Age: 12 Month
  Sex: Female
  Weight: 6.35 kg

DRUGS (1)
  1. DUPIXENT [Suspect]
     Active Substance: DUPILUMAB
     Indication: Dermatitis atopic
     Route: 058
     Dates: start: 20241101

REACTIONS (2)
  - Abnormal faeces [Unknown]
  - Faeces soft [Unknown]

NARRATIVE: CASE EVENT DATE: 20250101
